FAERS Safety Report 7276591-2 (Version None)
Quarter: 2011Q1

REPORT INFORMATION
  Report Type: 
  Country: None (occurrence: None)
  Receive Date: 20110204
  Receipt Date: 20110125
  Transmission Date: 20110831
  Serious: Yes (Hospitalization, Disabling)
  Sender: FDA-Public Use
  Company Number: PL-ABBOTT-11P-129-0697761-00

PATIENT
  Age: 46 Year
  Sex: Male

DRUGS (2)
  1. TARKA [Suspect]
     Indication: PRODUCT USED FOR UNKNOWN INDICATION
     Dosage: 20 TABLETS (180 MG VERAPAMIL/2MG TRANDOLAPRIL PER TAB)
     Route: 048
  2. ALCOHOL [Suspect]
     Indication: PRODUCT USED FOR UNKNOWN INDICATION
     Dosage: 0.5 LITERS
     Route: 048

REACTIONS (12)
  - HYPERGLYCAEMIA [None]
  - PERIPHERAL ISCHAEMIA [None]
  - BLOOD PRESSURE DECREASED [None]
  - POOR PERIPHERAL CIRCULATION [None]
  - SKIN DYSTROPHY [None]
  - HYPOKALAEMIA [None]
  - PAIN IN EXTREMITY [None]
  - OVERDOSE [None]
  - SUICIDE ATTEMPT [None]
  - COMA [None]
  - TACHYCARDIA [None]
  - ACUTE RESPIRATORY FAILURE [None]
